FAERS Safety Report 15935894 (Version 1)
Quarter: 2019Q1

REPORT INFORMATION
  Report Type: Spontaneous
  Country: GB (occurrence: GB)
  Receive Date: 20190208
  Receipt Date: 20190208
  Transmission Date: 20190417
  Serious: Yes (Other)
  Sender: FDA-Public Use
  Company Number: GB-ACCORD-105000

PATIENT
  Age: 79 Year
  Sex: Male
  Weight: 77 kg

DRUGS (6)
  1. TADALAFIL. [Concomitant]
     Active Substance: TADALAFIL
  2. ROSUVASTATIN/ROSUVASTATIN CALCIUM [Concomitant]
  3. IBUPROFEN. [Concomitant]
     Active Substance: IBUPROFEN
  4. CARMELLOSE/CARMELLOSE CALCIUM/CARMELLOSE SODIUM [Concomitant]
  5. FLUOROURACIL. [Suspect]
     Active Substance: FLUOROURACIL
     Indication: ACTINIC KERATOSIS
     Dosage: APPLY THINLY ON ONE DAY PER WEEK TWICE A DAY
     Route: 061
     Dates: start: 20180404, end: 20180423
  6. DIHYDROCODEINE [Concomitant]
     Active Substance: DIHYDROCODEINE
     Dosage: AT NIGHT

REACTIONS (6)
  - Peripheral swelling [Unknown]
  - Acne [Unknown]
  - Application site reaction [Recovering/Resolving]
  - Cellulitis [Recovering/Resolving]
  - Erythema [Unknown]
  - Off label use [Unknown]

NARRATIVE: CASE EVENT DATE: 20180420
